FAERS Safety Report 4404578-3 (Version None)
Quarter: 2004Q3

REPORT INFORMATION
  Report Type: 
  Country: None (occurrence: None)
  Receive Date: 20040720
  Receipt Date: 20040708
  Transmission Date: 20050211
  Serious: Yes (Hospitalization)
  Sender: FDA-Public Use
  Company Number: 04P-163-0266357-00

PATIENT
  Age: 38 Year
  Sex: Female
  Weight: 92.9874 kg

DRUGS (8)
  1. HUMIRA 40 MG/0.8 MLPRE-FILLED SYRINGE (HUMIRA) (ADALIMIMAB)  (ADALIMIM [Suspect]
     Indication: RHEUMATOID ARTHRITIS
     Dosage: SEE IMAGE
     Route: 058
     Dates: start: 20020201, end: 20021101
  2. HUMIRA 40 MG/0.8 MLPRE-FILLED SYRINGE (HUMIRA) (ADALIMIMAB)  (ADALIMIM [Suspect]
     Indication: RHEUMATOID ARTHRITIS
     Dosage: SEE IMAGE
     Route: 058
     Dates: start: 20021201, end: 20030301
  3. HUMIRA 40 MG/0.8 MLPRE-FILLED SYRINGE (HUMIRA) (ADALIMIMAB)  (ADALIMIM [Suspect]
     Indication: RHEUMATOID ARTHRITIS
     Dosage: SEE IMAGE
     Route: 058
     Dates: start: 20030401, end: 20031001
  4. HUMIRA 40 MG/0.8 MLPRE-FILLED SYRINGE (HUMIRA) (ADALIMIMAB)  (ADALIMIM [Suspect]
     Indication: RHEUMATOID ARTHRITIS
     Dosage: SEE IMAGE
     Route: 058
     Dates: start: 20031001, end: 20040201
  5. HUMIRA 40 MG/0.8 MLPRE-FILLED SYRINGE (HUMIRA) (ADALIMIMAB)  (ADALIMIM [Suspect]
     Indication: RHEUMATOID ARTHRITIS
     Dosage: SEE IMAGE
     Route: 058
     Dates: start: 20040301, end: 20040602
  6. PREDNISONE [Suspect]
     Indication: RHEUMATOID ARTHRITIS
     Dosage: PER ORAL
     Route: 048
     Dates: start: 19890101, end: 20030301
  7. BUCINDOLOL HYDROCHLORIDE [Concomitant]
  8. SULFASALAZINE [Concomitant]

REACTIONS (7)
  - ARTHROPATHY [None]
  - INCISION SITE ABSCESS [None]
  - INFLUENZA [None]
  - INJECTION SITE BURNING [None]
  - PAIN IN EXTREMITY [None]
  - PNEUMONIA [None]
  - SINUSITIS [None]
